FAERS Safety Report 7388917-X (Version None)
Quarter: 2011Q2

REPORT INFORMATION
  Report Type: 
  Country: None (occurrence: None)
  Receive Date: 20110401
  Receipt Date: 20110331
  Transmission Date: 20111010
  Serious: No
  Sender: FDA-Public Use
  Company Number: US-PFIZER INC-2011072592

PATIENT
  Sex: Male

DRUGS (2)
  1. ZOLOFT [Suspect]
  2. LORAZEPAM [Concomitant]
     Indication: PANIC ATTACK

REACTIONS (2)
  - NAUSEA [None]
  - DIARRHOEA [None]
